FAERS Safety Report 6987170-6 (Version None)
Quarter: 2010Q3

REPORT INFORMATION
  Report Type: 
  Country: None (occurrence: None)
  Receive Date: 20100916
  Receipt Date: 20100909
  Transmission Date: 20110219
  Serious: Yes (Other)
  Sender: FDA-Public Use
  Company Number: US-PFIZER INC-2010087863

PATIENT
  Sex: Male
  Weight: 83 kg

DRUGS (3)
  1. LIPITOR [Suspect]
     Indication: CARDIAC DISORDER
     Dosage: 20 MG, 1X/DAY
     Route: 048
  2. ADVAIR DISKUS 100/50 [Concomitant]
     Indication: ASTHMA
     Dosage: UNK
  3. ZETIA [Concomitant]
     Dosage: UNK

REACTIONS (4)
  - FALL [None]
  - NEUROPATHY PERIPHERAL [None]
  - POLLAKIURIA [None]
  - PROSTATE CANCER [None]
